FAERS Safety Report 9980382 (Version 1)
Quarter: 2014Q1

REPORT INFORMATION
  Report Type: Report from Study
  Country: JP (occurrence: JP)
  Receive Date: 20140307
  Receipt Date: 20140307
  Transmission Date: 20141002
  Serious: Yes (Other)
  Sender: FDA-Public Use
  Company Number: JP-ROCHE-1360691

PATIENT
  Age: 88 Year
  Sex: Female

DRUGS (5)
  1. ALTEPLASE [Suspect]
     Indication: EMBOLIC STROKE
     Route: 042
     Dates: start: 20120618, end: 20120618
  2. RADICUT [Suspect]
     Indication: EMBOLIC STROKE
     Route: 042
     Dates: start: 20120618
  3. GLYCEOL [Suspect]
     Indication: EMBOLIC STROKE
     Route: 041
  4. HEPARIN SODIUM [Concomitant]
     Route: 041
     Dates: start: 20120619
  5. WARFARIN SODIUM [Concomitant]
     Route: 065
     Dates: start: 20120627

REACTIONS (2)
  - Hepatic function abnormal [Recovered/Resolved]
  - Renal impairment [Recovered/Resolved]
